FAERS Safety Report 4786797-X (Version None)
Quarter: 2005Q4

REPORT INFORMATION
  Report Type: 
  Country: None (occurrence: None)
  Receive Date: 20051003
  Receipt Date: 20051003
  Transmission Date: 20060501
  Serious: No
  Sender: FDA-Public Use
  Company Number: None

PATIENT
  Age: 63 Year
  Sex: Male
  Weight: 84 kg

DRUGS (5)
  1. VYTORIN [Suspect]
     Indication: DYSLIPIDAEMIA
     Dosage: 80/10 DAILY PO
     Route: 048
     Dates: start: 20050719, end: 20050912
  2. LISINOPRIL [Concomitant]
  3. RANITIDINE [Concomitant]
  4. CYCLOBENZAPRINE HCL [Concomitant]
  5. AZITHROMYCIN [Concomitant]

REACTIONS (3)
  - BLOOD CREATINE PHOSPHOKINASE INCREASED [None]
  - MUSCLE SPASMS [None]
  - MYALGIA [None]
